FAERS Safety Report 4466178-9 (Version None)
Quarter: 2004Q3

REPORT INFORMATION
  Report Type: 
  Country: None (occurrence: None)
  Receive Date: 20040928
  Receipt Date: 20040928
  Transmission Date: 20050211
  Serious: Yes (Other)
  Sender: FDA-Public Use
  Company Number: None

PATIENT
  Age: 52 Year
  Sex: Male
  Weight: 65.7716 kg

DRUGS (2)
  1. SUBOXONE  2MG [Suspect]
     Indication: DRUG DEPENDENCE
     Dosage: 2MG TID
     Dates: start: 20040903
  2. SUBOXONE  2MG [Suspect]
     Indication: DRUG DEPENDENCE
     Dosage: 2MG TID
     Dates: start: 20040914

REACTIONS (1)
  - RESPIRATORY RATE DECREASED [None]
